FAERS Safety Report 21488284 (Version 1)
Quarter: 2022Q4

REPORT INFORMATION
  Report Type: Report from Study
  Country: CA (occurrence: CA)
  Receive Date: 20221020
  Receipt Date: 20221020
  Transmission Date: 20230113
  Serious: Yes (Other)
  Sender: FDA-Public Use
  Company Number: CA-JNJFOC-20220523265

PATIENT
  Age: 37 Year
  Sex: Female
  Weight: 159 kg

DRUGS (1)
  1. SIMPONI [Suspect]
     Active Substance: GOLIMUMAB
     Indication: Ankylosing spondylitis
     Route: 058
     Dates: start: 20220510, end: 20221014

REACTIONS (3)
  - Cellulitis [Unknown]
  - Exposure during pregnancy [Not Recovered/Not Resolved]
  - Gastrointestinal disorder [Unknown]

NARRATIVE: CASE EVENT DATE: 20220101
